FAERS Safety Report 14498217 (Version 1)
Quarter: 2018Q1

REPORT INFORMATION
  Report Type: Spontaneous
  Country: US (occurrence: US)
  Receive Date: 20180206
  Receipt Date: 20180206
  Transmission Date: 20180509
  Serious: No
  Sender: FDA-Public Use
  Company Number: None

PATIENT
  Age: 28 Year
  Sex: Female
  Weight: 47.25 kg

DRUGS (6)
  1. PRILOSEC OTC [Suspect]
     Active Substance: OMEPRAZOLE MAGNESIUM
     Indication: DYSPEPSIA
     Dosage: ?          QUANTITY:14 TABLET(S);?
     Route: 048
     Dates: start: 20180125, end: 20180205
  2. PROBIOTICS [Concomitant]
     Active Substance: PROBIOTICS NOS
  3. CBD OIL [Concomitant]
     Active Substance: CANNABIDIOL
  4. AIRBORNE [Concomitant]
     Active Substance: HERBALS\MINERALS\VITAMINS
  5. BACLOFEN. [Concomitant]
     Active Substance: BACLOFEN
  6. MORPHINE [Concomitant]
     Active Substance: MORPHINE

REACTIONS (4)
  - Hypertension [None]
  - Feeling abnormal [None]
  - Headache [None]
  - Chest discomfort [None]

NARRATIVE: CASE EVENT DATE: 20180205
